FAERS Safety Report 17657262 (Version 1)
Quarter: 2020Q2

REPORT INFORMATION
  Report Type: Spontaneous
  Country: DE (occurrence: DE)
  Receive Date: 20200410
  Receipt Date: 20200410
  Transmission Date: 20200713
  Serious: Yes (Other)
  Sender: FDA-Public Use
  Company Number: DE-JNJFOC-20200403914

PATIENT
  Age: 68 Year
  Sex: Female

DRUGS (8)
  1. RIVAROXABAN [Suspect]
     Active Substance: RIVAROXABAN
     Dosage: 20 MG, QD
     Route: 048
  2. THYRONAJOD [Concomitant]
     Active Substance: LEVOTHYROXINE SODIUM\POTASSIUM IODIDE
     Dosage: 75 UG, QD
  3. PREDNISOLONE. [Concomitant]
     Active Substance: PREDNISOLONE
     Dosage: 5 MG, QD
     Dates: start: 20190811
  4. PREDNISOLONE. [Concomitant]
     Active Substance: PREDNISOLONE
     Dosage: 10 MG, QD
     Dates: start: 20190808
  5. RIVAROXABAN [Suspect]
     Active Substance: RIVAROXABAN
     Indication: ANTICOAGULANT THERAPY
     Dosage: 15 MG, BID
     Route: 048
     Dates: start: 20190808, end: 20190901
  6. PREDNISOLONE. [Concomitant]
     Active Substance: PREDNISOLONE
     Dosage: 2.5 MG, QD
     Dates: start: 20190814
  7. METAMIZOLE SODIUM [Concomitant]
     Active Substance: METAMIZOLE SODIUM
     Dosage: UNK UNK, PRN
  8. MESALAZINE [Concomitant]
     Active Substance: MESALAMINE
     Dosage: 1000 MG, Q8HR

REACTIONS (7)
  - Pain [Unknown]
  - Oedema mouth [Unknown]
  - Noninfective sialoadenitis [Recovering/Resolving]
  - Adverse reaction [Unknown]
  - Localised oedema [Unknown]
  - Dysgeusia [Unknown]
  - Induration [Unknown]

NARRATIVE: CASE EVENT DATE: 20190818
